FAERS Safety Report 9123299 (Version 1)
Quarter: 2013Q1

REPORT INFORMATION
  Report Type: Spontaneous
  Country: SE (occurrence: SE)
  Receive Date: 20130115
  Receipt Date: 20130115
  Transmission Date: 20140127
  Serious: Yes (Other)
  Sender: FDA-Public Use
  Company Number: SE-PFIZER INC-2012316227

PATIENT
  Age: 66 Year
  Sex: Female

DRUGS (8)
  1. PREDNISOLON [Suspect]
     Indication: PERICARDITIS
     Dosage: 3 MG, 4 TABLETS PER DAY
     Dates: start: 201210
  2. FOLACIN [Suspect]
     Dosage: UNK
  3. ALENDRONIC ACID [Suspect]
     Dosage: UNK
  4. OMEPRAZOLE [Suspect]
     Dosage: UNK
  5. MYCOSTATIN [Suspect]
  6. KALCIPOS-D [Suspect]
     Dosage: UNK
  7. BETOLVEX [Suspect]
     Dosage: UNK
  8. PLAQUENIL [Suspect]
     Indication: SYSTEMIC LUPUS ERYTHEMATOSUS
     Dosage: UNK
     Dates: start: 20121121

REACTIONS (8)
  - Haematochezia [Not Recovered/Not Resolved]
  - Abdominal pain upper [Recovered/Resolved]
  - Constipation [Recovered/Resolved]
  - Diarrhoea [Recovered/Resolved]
  - Visual impairment [Recovered/Resolved]
  - Gingival disorder [Recovered/Resolved]
  - Memory impairment [Recovered/Resolved]
  - Nasopharyngitis [Not Recovered/Not Resolved]
